FAERS Safety Report 4960731-1 (Version None)
Quarter: 2006Q2

REPORT INFORMATION
  Report Type: 
  Country: None (occurrence: None)
  Receive Date: 20060403
  Receipt Date: 20060322
  Transmission Date: 20061013
  Serious: Yes (Other)
  Sender: FDA-Public Use
  Company Number: 2006AC00582

PATIENT
  Age: 90 Year
  Sex: Female

DRUGS (2)
  1. BUPIVACAINE [Suspect]
     Indication: ANAESTHESIA
     Route: 053
  2. GENERAL ANESTHETIC NOS [Suspect]
     Indication: GENERAL ANAESTHESIA

REACTIONS (4)
  - DYSPNOEA [None]
  - FLAIL CHEST [None]
  - RESPIRATORY DISTRESS [None]
  - RESPIRATORY FAILURE [None]
